FAERS Safety Report 9774984 (Version 1)
Quarter: 2013Q4

REPORT INFORMATION
  Report Type: Spontaneous
  Country: US (occurrence: US)
  Receive Date: 20131220
  Receipt Date: 20131220
  Transmission Date: 20140711
  Serious: No
  Sender: FDA-Public Use
  Company Number: US-GLAXOSMITHKLINE-A1028006A

PATIENT
  Age: 67 Year
  Sex: Female

DRUGS (13)
  1. AVODART [Suspect]
     Indication: ALOPECIA
     Dosage: .5MG PER DAY
     Route: 048
     Dates: start: 20130613, end: 20130618
  2. COZAAR [Concomitant]
  3. CRESTOR [Concomitant]
  4. HYDRODIURIL [Concomitant]
  5. NORVASC [Concomitant]
  6. ALPRAZOLAM [Concomitant]
  7. UNKNOWN MEDICATION [Concomitant]
  8. COQ10 [Concomitant]
  9. BIOTIN [Concomitant]
  10. B6 [Concomitant]
  11. ROGAINE [Concomitant]
  12. LOSARTAN [Concomitant]
     Dates: start: 201307
  13. METOPROLOL [Concomitant]
     Dates: end: 201307

REACTIONS (4)
  - Muscle tightness [Recovered/Resolved]
  - Joint stiffness [Recovering/Resolving]
  - Hypoaesthesia [Recovering/Resolving]
  - Nervousness [Unknown]
